FAERS Safety Report 9379347 (Version 2)
Quarter: 2013Q3

REPORT INFORMATION
  Report Type: Spontaneous
  Country: US (occurrence: US)
  Receive Date: 20130702
  Receipt Date: 20130814
  Transmission Date: 20140515
  Serious: No
  Sender: FDA-Public Use
  Company Number: US-ROXANE LABORATORIES, INC.-2013-RO-01053RO

PATIENT
  Age: 77 Year
  Sex: Male
  Weight: 86 kg

DRUGS (1)
  1. LIDOCAINE [Suspect]
     Indication: HEADACHE
     Dates: start: 2003

REACTIONS (2)
  - Drug ineffective for unapproved indication [Recovered/Resolved]
  - Product quality issue [Recovered/Resolved]
